FAERS Safety Report 5113767-4 (Version None)
Quarter: 2006Q3

REPORT INFORMATION
  Report Type: 
  Country: None (occurrence: None)
  Receive Date: 20060920
  Receipt Date: 20060906
  Transmission Date: 20061208
  Serious: Yes (Death, Other)
  Sender: FDA-Public Use
  Company Number: BMRN-2006-042

PATIENT
  Age: 74 Year
  Sex: Male

DRUGS (4)
  1. PREDNISOLONE 60 MG/DAY TAPERED TO 40 MG/DAY [Suspect]
     Indication: PYODERMA GANGRENOSUM
     Dosage: 60 TO 40 MG/DAY ORAL
     Route: 048
     Dates: start: 20021101, end: 20030201
  2. ORAPRED (PREDNISOLONE SODIUM PHOSPHATE) SOLUTION (EXCEPT SYRUP), 20.2M [Suspect]
  3. ANABOLIC STEROIDS [Concomitant]
  4. BLOOD TRANSFUSIONS [Concomitant]

REACTIONS (6)
  - BRONCHOPNEUMONIA [None]
  - CONDITION AGGRAVATED [None]
  - DIFFUSE LARGE B-CELL LYMPHOMA [None]
  - MONOPLEGIA [None]
  - PYOTHORAX [None]
  - RESPIRATORY FAILURE [None]
